FAERS Safety Report 5869351-8 (Version None)
Quarter: 2008Q3

REPORT INFORMATION
  Report Type: 
  Country: None (occurrence: None)
  Receive Date: 20080828
  Receipt Date: 20080819
  Transmission Date: 20090109
  Serious: Yes (Death)
  Sender: FDA-Public Use
  Company Number: 230148J08GRC

PATIENT
  Sex: Female

DRUGS (1)
  1. REBIF [Suspect]
     Dosage: YEARS

REACTIONS (1)
  - BEDRIDDEN [None]
